FAERS Safety Report 8451447-8 (Version None)
Quarter: 2012Q2

REPORT INFORMATION
  Report Type: 
  Country: None (occurrence: None)
  Receive Date: 20120620
  Receipt Date: 20120301
  Transmission Date: 20120825
  Serious: No
  Sender: FDA-Public Use
  Company Number: US-VERTEX PHARMACEUTICALS INC.-AE-2012-003020

PATIENT
  Sex: Male
  Weight: 69.916 kg

DRUGS (5)
  1. PEGINTERFERON ALFA-2A [Concomitant]
     Indication: HEPATITIS C
     Dates: start: 20120224
  2. GABAPENTIN [Concomitant]
  3. NORTRIPTYLINE HYDROCHLORIDE [Concomitant]
  4. INCIVEK [Suspect]
     Indication: HEPATITIS C
     Route: 048
     Dates: start: 20120224
  5. RIBAVIRIN [Concomitant]
     Indication: HEPATITIS C
     Dates: start: 20120224

REACTIONS (8)
  - ASTHENIA [None]
  - CHILLS [None]
  - MALAISE [None]
  - POOR QUALITY SLEEP [None]
  - ABDOMINAL DISCOMFORT [None]
  - PYREXIA [None]
  - DYSPEPSIA [None]
  - FATIGUE [None]
